FAERS Safety Report 9815732 (Version 1)
Quarter: 2014Q1

REPORT INFORMATION
  Report Type: Spontaneous
  Country: EG (occurrence: None)
  Receive Date: 20140110
  Receipt Date: 20140110
  Transmission Date: 20141002
  Serious: Yes (Other)
  Sender: FDA-Public Use
  Company Number: 2013P1022413

PATIENT
  Sex: 0

DRUGS (1)
  1. PROPRANOLOL [Suspect]
     Indication: HAEMANGIOMA
     Route: 048

REACTIONS (1)
  - Syncope [None]
